FAERS Safety Report 6032092-0 (Version None)
Quarter: 2009Q1

REPORT INFORMATION
  Report Type: 
  Country: None (occurrence: None)
  Receive Date: 20090108
  Receipt Date: 20081231
  Transmission Date: 20090719
  Serious: Yes (Other)
  Sender: FDA-Public Use
  Company Number: JP-PFIZER INC-2008161023

PATIENT

DRUGS (1)
  1. SILDENAFIL CITRATE [Suspect]
     Dosage: 50 MG, UNK

REACTIONS (1)
  - HEPATOTOXICITY [None]
